FAERS Safety Report 9128639 (Version 5)
Quarter: 2013Q3

REPORT INFORMATION
  Report Type: Report from Study
  Country: JP (occurrence: JP)
  Receive Date: 20130228
  Receipt Date: 20130828
  Transmission Date: 20140515
  Serious: Yes (Death, Hospitalization)
  Sender: FDA-Public Use
  Company Number: JP-B.I. PHARMACEUTICALS,INC./RIDGEFIELD-2013-BI-05050NB

PATIENT
  Age: 85 Year
  Sex: Male
  Weight: 78 kg

DRUGS (10)
  1. PRADAXA [Suspect]
     Indication: ATRIAL FIBRILLATION
     Dosage: 220 MG
     Route: 048
     Dates: start: 20120620, end: 20120814
  2. PRADAXA [Suspect]
     Indication: PROPHYLAXIS
  3. PRADAXA [Suspect]
     Indication: PROPHYLAXIS
  4. DORNER [Suspect]
     Indication: PROPHYLAXIS
     Dosage: 120 MCG
     Route: 048
     Dates: end: 20120814
  5. BAYASPIRIN [Suspect]
     Indication: PROPHYLAXIS
     Dosage: 100 MG
     Route: 048
     Dates: end: 20120814
  6. HALFDIGOXIN [Concomitant]
     Indication: ATRIAL FIBRILLATION
     Dosage: 0.125 MG
     Route: 048
     Dates: end: 20120814
  7. TAMBOCOR [Concomitant]
     Indication: ATRIAL FIBRILLATION
     Dosage: 100 MG
     Route: 048
     Dates: end: 20120814
  8. ASPENON [Concomitant]
     Indication: ATRIAL FIBRILLATION
     Dosage: 40 MG
     Route: 048
     Dates: end: 20120814
  9. ZANTAC [Concomitant]
     Indication: PROPHYLAXIS
     Dosage: 300 MG
     Route: 048
     Dates: end: 20120814
  10. UNISIA [Concomitant]
     Indication: HYPERTENSION
     Dosage: DAILY DOSE: /1TIME/1DAY
     Route: 048
     Dates: end: 20120814

REACTIONS (6)
  - Pneumonia [Fatal]
  - Septic shock [Fatal]
  - Haemothorax [Recovered/Resolved]
  - Shock haemorrhagic [Recovered/Resolved]
  - Fall [Not Recovered/Not Resolved]
  - Rib fracture [Not Recovered/Not Resolved]
